FAERS Safety Report 10629778 (Version 1)
Quarter: 2014Q4

REPORT INFORMATION
  Report Type: Spontaneous
  Country: US (occurrence: US)
  Receive Date: 20141205
  Receipt Date: 20141205
  Transmission Date: 20150529
  Serious: No
  Sender: FDA-Public Use
  Company Number: US-BRISTOL-MYERS SQUIBB COMPANY-20619649

PATIENT

DRUGS (2)
  1. METFORMIN HCL [Suspect]
     Active Substance: METFORMIN HYDROCHLORIDE
  2. NOVOLIN 70/30 [Suspect]
     Active Substance: INSULIN HUMAN
     Dosage: 70/30 VIAL

REACTIONS (2)
  - Blood glucose increased [Unknown]
  - Glycosylated haemoglobin increased [Unknown]
